FAERS Safety Report 18611054 (Version 1)
Quarter: 2020Q4

REPORT INFORMATION
  Report Type: Spontaneous
  Country: GB (occurrence: GB)
  Receive Date: 20201214
  Receipt Date: 20201214
  Transmission Date: 20210114
  Serious: Yes (Hospitalization)
  Sender: FDA-Public Use
  Company Number: GB-JNJFOC-20201219199

PATIENT
  Age: 60 Year
  Sex: Female

DRUGS (21)
  1. SALAMOL [SALBUTAMOL] [Concomitant]
     Dosage: 100MICROGRAMS/DOSE INHALER; AS REQUIRED
     Dates: start: 20200922
  2. APIXABAN [Concomitant]
     Active Substance: APIXABAN
  3. PARACETAMOL [Concomitant]
     Active Substance: ACETAMINOPHEN
     Dosage: TWO TO BE TAKEN EVERY 4-6 HOURS UP TOFOUR TIMES A DAY
     Dates: start: 20201030
  4. SYMBICORT [Concomitant]
     Active Substance: BUDESONIDE\FORMOTEROL FUMARATE DIHYDRATE
     Dosage: 200/6. AS DIRECTED CHEST CLINIC
     Dates: start: 20201030
  5. SPIRONOLACTONE. [Concomitant]
     Active Substance: SPIRONOLACTONE
     Dosage: EACH MORNING.
  6. FOLIC ACID. [Concomitant]
     Active Substance: FOLIC ACID
  7. PIZOTIFEN [Concomitant]
     Active Substance: PIZOTYLINE
     Dosage: AT NIGHT; AS REQUIRED
     Dates: start: 20201116
  8. CLOPIDOGREL [Concomitant]
     Active Substance: CLOPIDOGREL BISULFATE
     Dates: start: 20201116
  9. MUCOGEL [ALUMINIUM HYDROXIDE;MAGNESIUM HYDROXIDE] [Concomitant]
     Dosage: 10-20ML THREETIMES A DAY 20 - 60 MINUTES AFTER MEALS AND AT BEDTIME OR AS REQUIRED
     Route: 048
  10. LEVOTHYROXINE. [Concomitant]
     Active Substance: LEVOTHYROXINE
     Dosage: PREFERABLY 30-60 MINUTES BEFORE BREAKFAST, CAFFEINE-CONTAINING DRINKS OR OTHER MEDICATION
  11. HUMULIN M3 [Concomitant]
     Active Substance: INSULIN HUMAN
     Dosage: 20UNIT IN THE MORNING AND 16 UNITS AFTER EVENING MEAL.
     Route: 058
     Dates: start: 20201030
  12. FERROUS FUMARATE [Concomitant]
     Active Substance: FERROUS FUMARATE
  13. ADCAL-D3 [Concomitant]
     Active Substance: CALCIUM CARBONATE\CHOLECALCIFEROL
     Dates: start: 20201116
  14. FAMOTIDINE. [Concomitant]
     Active Substance: FAMOTIDINE
     Dates: start: 20201116
  15. ISOSORBIDE MONONITRATE. [Concomitant]
     Active Substance: ISOSORBIDE MONONITRATE
     Dates: start: 20201116
  16. FUROSEMIDE. [Concomitant]
     Active Substance: FUROSEMIDE
     Dosage: ; AS REQUIRED
     Dates: start: 20200922
  17. BISOPROLOL [Concomitant]
     Active Substance: BISOPROLOL
     Dates: start: 20201106
  18. CANAGLIFLOZIN [Suspect]
     Active Substance: CANAGLIFLOZIN
     Indication: DIABETES MELLITUS
     Route: 048
     Dates: start: 20201021, end: 20201106
  19. ATORVASTATIN [Concomitant]
     Active Substance: ATORVASTATIN
     Dosage: AT NIGHT.
  20. ENTRESTO [Concomitant]
     Active Substance: SACUBITRIL\VALSARTAN
     Dosage: 24MG/26MG
     Dates: start: 20201116
  21. LINAGLIPTIN [Concomitant]
     Active Substance: LINAGLIPTIN
     Dates: start: 20201116

REACTIONS (3)
  - Hypomagnesaemia [Recovered/Resolved with Sequelae]
  - Hypotension [Recovered/Resolved with Sequelae]
  - Hypocalcaemia [Recovered/Resolved with Sequelae]

NARRATIVE: CASE EVENT DATE: 20201106
